FAERS Safety Report 17196605 (Version 1)
Quarter: 2019Q4

REPORT INFORMATION
  Report Type: Spontaneous
  Country: US (occurrence: US)
  Receive Date: 20191224
  Receipt Date: 20191224
  Transmission Date: 20200122
  Serious: Yes (Hospitalization, Other)
  Sender: FDA-Public Use
  Company Number: US-PFIZER INC-2019550066

PATIENT
  Age: 45 Year
  Sex: Female
  Weight: 102 kg

DRUGS (4)
  1. CELEBREX [Suspect]
     Active Substance: CELECOXIB
     Indication: PAIN
     Dosage: 200 MG, 2X/DAY
     Dates: start: 2019, end: 201911
  2. CYCLOBENZAPRINE. [Concomitant]
     Active Substance: CYCLOBENZAPRINE
     Indication: MUSCLE RELAXANT THERAPY
     Dosage: 10 MG, 3X/DAY
     Route: 048
  3. CELEBREX [Suspect]
     Active Substance: CELECOXIB
     Indication: ADENOMYOSIS
     Dosage: 1 DF, AS NEEDED [ONE TABLET BY MOUTH EVERY SIX HOURS AS NEEDED FOR PAIN]
     Route: 048
  4. GABAPENTIN. [Concomitant]
     Active Substance: GABAPENTIN
     Indication: DIABETIC NEUROPATHY
     Dosage: 600 MG, 2X/DAY

REACTIONS (18)
  - Palpitations [Recovering/Resolving]
  - Gait inability [Recovering/Resolving]
  - Abdominal distension [Unknown]
  - Lip swelling [Unknown]
  - Joint swelling [Recovering/Resolving]
  - Diarrhoea [Recovering/Resolving]
  - Rash [Recovered/Resolved]
  - Condition aggravated [Unknown]
  - Pneumonia [Recovered/Resolved]
  - Peripheral swelling [Unknown]
  - Decreased appetite [Not Recovered/Not Resolved]
  - Headache [Recovering/Resolving]
  - Swelling [Recovering/Resolving]
  - Swelling face [Unknown]
  - Lymphadenopathy [Unknown]
  - Inflammation [Unknown]
  - Hyperhidrosis [Not Recovered/Not Resolved]
  - Uterine pain [Unknown]

NARRATIVE: CASE EVENT DATE: 2019
